APPROVED DRUG PRODUCT: ETOPOSIDE
Active Ingredient: ETOPOSIDE
Strength: 20MG/ML
Dosage Form/Route: INJECTABLE;INJECTION
Application: A074813 | Product #001
Applicant: PIERRE FABRE MEDICAMENT
Approved: Jul 9, 1997 | RLD: No | RS: No | Type: DISCN